FAERS Safety Report 17456405 (Version 1)
Quarter: 2020Q1

REPORT INFORMATION
  Report Type: Spontaneous
  Country: US (occurrence: US)
  Receive Date: 20200225
  Receipt Date: 20200225
  Transmission Date: 20200409
  Serious: Yes (Hospitalization)
  Sender: FDA-Public Use
  Company Number: None

PATIENT
  Age: 24 Year
  Sex: Female

DRUGS (1)
  1. DUPIXENT [Suspect]
     Active Substance: DUPILUMAB
     Indication: ASTHMA
     Dosage: ?          OTHER FREQUENCY:EVERY 14 DAYS;?
     Route: 058
     Dates: start: 20200108, end: 20200219

REACTIONS (8)
  - Lethargy [None]
  - Seizure [None]
  - Oxygen saturation decreased [None]
  - Cough [None]
  - Hypotension [None]
  - Urinary tract infection [None]
  - Dyspnoea [None]
  - Dialysis [None]
